FAERS Safety Report 9325926 (Version 3)
Quarter: 2013Q2

REPORT INFORMATION
  Report Type: Spontaneous
  Country: JP (occurrence: JP)
  Receive Date: 20130604
  Receipt Date: 20130627
  Transmission Date: 20140414
  Serious: Yes (Other)
  Sender: FDA-Public Use
  Company Number: JP-JNJFOC-20130521592

PATIENT
  Age: 49 Year
  Sex: Female

DRUGS (3)
  1. LEUSTATIN [Suspect]
     Indication: HAIRY CELL LEUKAEMIA
     Route: 041
     Dates: start: 20130507, end: 20130513
  2. ZYLORIC [Interacting]
     Indication: PROPHYLAXIS
     Route: 048
     Dates: start: 20130511, end: 20130516
  3. BACTRAMIN [Suspect]
     Indication: PROPHYLAXIS
     Route: 048
     Dates: start: 20130507, end: 20130518

REACTIONS (2)
  - Erythema multiforme [Recovered/Resolved]
  - Drug interaction [Unknown]
